FAERS Safety Report 4684652-7 (Version None)
Quarter: 2005Q2

REPORT INFORMATION
  Report Type: 
  Country: None (occurrence: None)
  Receive Date: 20050603
  Receipt Date: 20050526
  Transmission Date: 20051028
  Serious: Yes (Hospitalization, Other)
  Sender: FDA-Public Use
  Company Number: SUSI-2005-00442

PATIENT
  Age: 21 Year
  Sex: Male

DRUGS (1)
  1. PENTASA [Suspect]
     Indication: CROHN'S DISEASE
     Dosage: 4 G DAILY

REACTIONS (8)
  - ARTHRALGIA [None]
  - DRUG INEFFECTIVE [None]
  - HYPERSENSITIVITY [None]
  - INFLAMMATION [None]
  - LEUKOCYTOSIS [None]
  - MUSCLE DISORDER [None]
  - MYALGIA [None]
  - SKIN DISORDER [None]
